FAERS Safety Report 17388216 (Version 1)
Quarter: 2020Q1

REPORT INFORMATION
  Report Type: Spontaneous
  Country: US (occurrence: US)
  Receive Date: 20200206
  Receipt Date: 20200206
  Transmission Date: 20200409
  Serious: No
  Sender: FDA-Public Use
  Company Number: None

PATIENT

DRUGS (1)
  1. QUEEN CITY HEMP 500MG (CBD) [Suspect]
     Active Substance: CANNABIDIOL\HERBALS

REACTIONS (8)
  - Albumin globulin ratio decreased [None]
  - PCO2 increased [None]
  - Gamma-glutamyltransferase increased [None]
  - Anion gap decreased [None]
  - Blood alkaline phosphatase increased [None]
  - Protein total increased [None]
  - Globulins increased [None]
  - C-reactive protein increased [None]
